FAERS Safety Report 12770907 (Version 1)
Quarter: 2016Q3

REPORT INFORMATION
  Report Type: Spontaneous
  Country: US (occurrence: US)
  Receive Date: 20160921
  Receipt Date: 20160921
  Transmission Date: 20161109
  Serious: Yes (Disabling)
  Sender: FDA-Public Use
  Company Number: None

PATIENT
  Age: 53 Year
  Sex: Female

DRUGS (1)
  1. AMITRIPTYLIN 10MG TAB ACC [Suspect]
     Active Substance: AMITRIPTYLINE
     Indication: PAIN
     Dosage: OTHER STRENGTH:;OTHER DOSE:;OTHER FREQUENCY:;OTHER ROUTE:SWALLOWED
     Dates: start: 20160917, end: 20160920

REACTIONS (4)
  - Irritability [None]
  - Pain [None]
  - Condition aggravated [None]
  - Product substitution issue [None]

NARRATIVE: CASE EVENT DATE: 20160917
